FAERS Safety Report 8094601-X (Version None)
Quarter: 2012Q1

REPORT INFORMATION
  Report Type: 
  Country: None (occurrence: None)
  Receive Date: 20120126
  Receipt Date: 20120119
  Transmission Date: 20120608
  Serious: Yes (Disabling, Other)
  Sender: FDA-Public Use
  Company Number: AUR-APL-2012-00577

PATIENT
  Age: 62 Year
  Sex: Male

DRUGS (6)
  1. TARGINACT PROONGED RELEASE (TARGIN) [Concomitant]
  2. LANSOPRAZOLE [Concomitant]
  3. DIAZEPAM [Concomitant]
  4. AMLODIPINE [Concomitant]
  5. MIRTAZAPINE [Suspect]
     Indication: INSOMNIA
     Dosage: (30 MG), ORAL
     Route: 048
     Dates: start: 20111108, end: 20111117
  6. RAMIPRIL [Concomitant]

REACTIONS (5)
  - ABNORMAL BEHAVIOUR [None]
  - ANGER [None]
  - HALLUCINATION, AUDITORY [None]
  - HOSTILITY [None]
  - HYPERTENSIVE CRISIS [None]
